FAERS Safety Report 6991612-X (Version None)
Quarter: 2010Q3

REPORT INFORMATION
  Report Type: 
  Country: None (occurrence: None)
  Receive Date: 20100917
  Receipt Date: 20100909
  Transmission Date: 20110219
  Serious: No
  Sender: FDA-Public Use
  Company Number: US-BIOGENIDEC-2010BI031800

PATIENT
  Age: 66 Year
  Sex: Female

DRUGS (3)
  1. TYSABRI [Suspect]
     Indication: MULTIPLE SCLEROSIS
     Route: 042
     Dates: start: 20071025
  2. TRANQUILIZER [Concomitant]
     Indication: POOR VENOUS ACCESS
     Dates: start: 20100801
  3. TRANQUILIZER [Concomitant]
     Indication: TREMOR
     Dates: start: 20100801

REACTIONS (2)
  - POOR VENOUS ACCESS [None]
  - TREMOR [None]
